FAERS Safety Report 12912808 (Version 1)
Quarter: 2016Q4

REPORT INFORMATION
  Report Type: Report from Study
  Country: US (occurrence: US)
  Receive Date: 20161104
  Receipt Date: 20161104
  Transmission Date: 20170207
  Serious: Yes (Hospitalization)
  Sender: FDA-Public Use
  Company Number: US-EISAI MEDICAL RESEARCH-EC-2015-010590

PATIENT
  Age: 67 Year
  Sex: Male
  Weight: 97.5 kg

DRUGS (21)
  1. LENVIMA [Suspect]
     Active Substance: LENVATINIB
     Route: 048
     Dates: start: 2016
  2. AVAPRO [Concomitant]
     Active Substance: IRBESARTAN
  3. AMLODIPINE BESYLATE. [Concomitant]
     Active Substance: AMLODIPINE BESYLATE
  4. LEVAQUIN [Concomitant]
     Active Substance: LEVOFLOXACIN
  5. LENVIMA [Suspect]
     Active Substance: LENVATINIB
     Indication: THYROID CANCER
     Route: 048
     Dates: start: 20150917, end: 20150923
  6. LENVIMA [Suspect]
     Active Substance: LENVATINIB
     Route: 048
     Dates: start: 201512, end: 2016
  7. LOSARTAN POTASSIUM. [Concomitant]
     Active Substance: LOSARTAN POTASSIUM
  8. ZOFRAN [Concomitant]
     Active Substance: ONDANSETRON HYDROCHLORIDE
  9. ACIDOPHILUS [Concomitant]
     Active Substance: LACTOBACILLUS ACIDOPHILUS
  10. OMEPRAZOLE. [Concomitant]
     Active Substance: OMEPRAZOLE
  11. ZITHROMAX [Concomitant]
     Active Substance: AZITHROMYCIN DIHYDRATE
  12. VITAMIN D3 [Concomitant]
     Active Substance: CHOLECALCIFEROL
  13. SYNTHROID [Concomitant]
     Active Substance: LEVOTHYROXINE SODIUM
  14. TAMSULOSIN HCL [Concomitant]
     Active Substance: TAMSULOSIN
  15. TUMS [Concomitant]
     Active Substance: CALCIUM CARBONATE
  16. OMEGA 3 [Concomitant]
     Active Substance: OMEGA-3 FATTY ACIDS
  17. TYLENOL [Concomitant]
     Active Substance: ACETAMINOPHEN
  18. MULTIVITAMINS [Concomitant]
     Active Substance: VITAMINS
  19. CALCIUM [Concomitant]
     Active Substance: CALCIUM
  20. LAXATIVE [Concomitant]
     Active Substance: UNSPECIFIED INGREDIENT
  21. STOOL SOFTENER (DOCUSATE CALCIUM) [Concomitant]
     Active Substance: DOCUSATE CALCIUM

REACTIONS (18)
  - Myalgia [Unknown]
  - Dizziness [Unknown]
  - Hypertension [Unknown]
  - Dysgeusia [Unknown]
  - Oropharyngeal pain [Unknown]
  - Sneezing [Unknown]
  - Ageusia [Unknown]
  - Weight decreased [Unknown]
  - Ear swelling [Unknown]
  - Headache [Not Recovered/Not Resolved]
  - Constipation [Unknown]
  - Fatigue [Unknown]
  - Diarrhoea [Unknown]
  - Somnolence [Unknown]
  - Decreased appetite [Unknown]
  - Dysphonia [Unknown]
  - Rhinorrhoea [Unknown]
  - Balance disorder [Unknown]

NARRATIVE: CASE EVENT DATE: 201509
